FAERS Safety Report 7530007-7 (Version None)
Quarter: 2011Q2

REPORT INFORMATION
  Report Type: 
  Country: None (occurrence: None)
  Receive Date: 20110607
  Receipt Date: 20110106
  Transmission Date: 20111010
  Serious: Yes (Hospitalization, Other)
  Sender: FDA-Public Use
  Company Number: US-BAYER-201025483NA

PATIENT
  Age: 22 Year
  Sex: Female
  Weight: 95.238 kg

DRUGS (11)
  1. YAZ [Suspect]
     Indication: CONTRACEPTION
     Route: 048
     Dates: start: 20050901, end: 20080501
  2. UNISOM [Concomitant]
  3. PROVENTIL GENTLEHALER [Concomitant]
     Indication: UPPER RESPIRATORY TRACT INFECTION
  4. ALBUTEROL SULFATE AUTOHALER [Concomitant]
  5. YASMIN [Suspect]
     Indication: CONTRACEPTION
     Route: 048
     Dates: start: 20031001, end: 20050801
  6. IBUPROFEN [Concomitant]
  7. MUCINEX [Concomitant]
  8. LEVAQUIN [Concomitant]
     Indication: UPPER RESPIRATORY TRACT INFECTION
     Dosage: 500 MG, QD
  9. DECONEX [Concomitant]
  10. LISINOPRIL [Concomitant]
     Dosage: UNK
     Dates: start: 20080601, end: 20090601
  11. FUROSEMIDE [Concomitant]
     Dosage: UNK
     Dates: start: 20080828

REACTIONS (3)
  - CARDIAC FAILURE ACUTE [None]
  - CARDIAC ARREST [None]
  - CARDIAC FAILURE CONGESTIVE [None]
